FAERS Safety Report 16489407 (Version 1)
Quarter: 2019Q3

REPORT INFORMATION
  Report Type: Spontaneous
  Country: US (occurrence: US)
  Receive Date: 20190627
  Receipt Date: 20190627
  Transmission Date: 20191004
  Serious: Yes (Other)
  Sender: FDA-Public Use
  Company Number: None

PATIENT
  Age: 41 Year
  Sex: Female
  Weight: 67.5 kg

DRUGS (4)
  1. CYMBALTA [Suspect]
     Active Substance: DULOXETINE HYDROCHLORIDE
     Indication: MAJOR DEPRESSION
     Dosage: ?          QUANTITY:1 CAPSULE(S);?
     Route: 048
     Dates: start: 20110630, end: 20190626
  2. VITAMIN B 12 COMPLEX [Concomitant]
  3. BUPROPRION [Concomitant]
     Active Substance: BUPROPION
  4. CLARITIN [Concomitant]
     Active Substance: LORATADINE

REACTIONS (7)
  - Withdrawal syndrome [None]
  - Impulsive behaviour [None]
  - Depression [None]
  - Agitation [None]
  - Fatigue [None]
  - Paraesthesia [None]
  - Feeling abnormal [None]

NARRATIVE: CASE EVENT DATE: 20190626
